FAERS Safety Report 8468907-6 (Version None)
Quarter: 2012Q2

REPORT INFORMATION
  Report Type: 
  Country: None (occurrence: None)
  Receive Date: 20120621
  Receipt Date: 20120621
  Transmission Date: 20120825
  Serious: Yes (Hospitalization)
  Sender: FDA-Public Use
  Company Number: None

PATIENT
  Age: 63 Year
  Sex: Male
  Weight: 111.3 kg

DRUGS (1)
  1. DILTIAZEM HYDROCHOLORIDE [Suspect]
     Indication: HYPERTENSION
     Dosage: 120 MG, EVERY DAY, PO
     Route: 048
     Dates: start: 20120403, end: 20120613

REACTIONS (6)
  - CONVULSION [None]
  - FALL [None]
  - CONDITION AGGRAVATED [None]
  - MYOCLONUS [None]
  - METABOLIC DISORDER [None]
  - CEREBROVASCULAR ACCIDENT [None]
